FAERS Safety Report 5340518-0 (Version None)
Quarter: 2007Q2

REPORT INFORMATION
  Report Type: 
  Country: None (occurrence: None)
  Receive Date: 20070531
  Receipt Date: 20070521
  Transmission Date: 20071010
  Serious: Yes (Hospitalization)
  Sender: FDA-Public Use
  Company Number: GB-PFIZER INC-2006148873

PATIENT
  Sex: Male
  Weight: 77.8 kg

DRUGS (5)
  1. SU-011,248 [Suspect]
     Indication: RENAL CELL CARCINOMA STAGE UNSPECIFIED
     Route: 048
  2. LANSOPRAZOLE [Concomitant]
     Route: 048
  3. FLOXACILLIN SODIUM [Concomitant]
     Route: 048
     Dates: start: 20061101, end: 20061129
  4. MEDROXYPROGESTERONE [Concomitant]
     Route: 048
  5. AMLODIPINE [Concomitant]
     Route: 048
     Dates: start: 20060101, end: 20061212

REACTIONS (1)
  - LOWER RESPIRATORY TRACT INFECTION [None]
